FAERS Safety Report 17830945 (Version 1)
Quarter: 2020Q2

REPORT INFORMATION
  Report Type: Spontaneous
  Country: US (occurrence: US)
  Receive Date: 20200527
  Receipt Date: 20200527
  Transmission Date: 20200714
  Serious: No
  Sender: FDA-Public Use
  Company Number: US-THERAPEUTICSMD-2020TMD01193

PATIENT
  Age: 37 Year
  Sex: Female
  Weight: 79.37 kg

DRUGS (4)
  1. ZYRTEC [Concomitant]
     Active Substance: CETIRIZINE HYDROCHLORIDE
  2. LEXAPRO [Concomitant]
     Active Substance: ESCITALOPRAM OXALATE
  3. ANNOVERA [Suspect]
     Active Substance: ETHINYL ESTRADIOL\SEGESTERONE ACETATE
     Indication: MENORRHAGIA
     Dosage: UNK, ONCE
     Route: 067
     Dates: start: 20200218, end: 2020
  4. IRON [Concomitant]
     Active Substance: IRON

REACTIONS (5)
  - Drug ineffective for unapproved indication [Recovered/Resolved]
  - Menorrhagia [Recovered/Resolved]
  - Incorrect product administration duration [Recovered/Resolved]
  - Oligomenorrhoea [Recovered/Resolved]
  - Metrorrhagia [Recovered/Resolved]

NARRATIVE: CASE EVENT DATE: 202002
